FAERS Safety Report 19907756 (Version 1)
Quarter: 2021Q3

REPORT INFORMATION
  Report Type: Spontaneous
  Country: US (occurrence: US)
  Receive Date: 20210930
  Receipt Date: 20210930
  Transmission Date: 20211014
  Serious: Yes (Other)
  Sender: FDA-Public Use
  Company Number: US-DRREDDYS-LIT/USA/21/0142194

PATIENT
  Age: 41 Year
  Sex: Male

DRUGS (5)
  1. GABAPENTIN. [Suspect]
     Active Substance: GABAPENTIN
     Indication: TREMOR
  2. PROPRANOLOL [Suspect]
     Active Substance: PROPRANOLOL HYDROCHLORIDE
     Indication: TREMOR
  3. SODIUM OXYBATE. [Suspect]
     Active Substance: SODIUM OXYBATE
     Indication: TREMOR
  4. PRIMIDONE TABLETS [Suspect]
     Active Substance: PRIMIDONE
     Indication: TREMOR
  5. CLONAZEPAM. [Suspect]
     Active Substance: CLONAZEPAM
     Indication: TREMOR

REACTIONS (1)
  - Drug ineffective [Unknown]
